FAERS Safety Report 4582665-7 (Version None)
Quarter: 2005Q1

REPORT INFORMATION
  Report Type: 
  Country: None (occurrence: None)
  Receive Date: 20050215
  Receipt Date: 20050211
  Transmission Date: 20050727
  Serious: Yes (Hospitalization)
  Sender: FDA-Public Use
  Company Number: NL-MERCK-0502NLD00024

PATIENT
  Age: 52 Year
  Sex: Female

DRUGS (2)
  1. VIOXX [Suspect]
     Indication: FIBROMYALGIA
     Route: 048
     Dates: start: 20020101
  2. FLUOXETINE HYDROCHLORIDE [Concomitant]
     Route: 048
     Dates: start: 20000101

REACTIONS (1)
  - MYOCARDIAL INFARCTION [None]
